FAERS Safety Report 5203986-0 (Version None)
Quarter: 2007Q1

REPORT INFORMATION
  Report Type: 
  Country: None (occurrence: None)
  Receive Date: 20070110
  Receipt Date: 20061229
  Transmission Date: 20070707
  Serious: Yes (Hospitalization, Other)
  Sender: FDA-Public Use
  Company Number: US-PFIZER INC-2006109533

PATIENT
  Sex: Male
  Weight: 83.9 kg

DRUGS (2)
  1. CELEBREX [Suspect]
     Indication: PAIN MANAGEMENT
     Route: 048
  2. CELEBREX [Suspect]
     Indication: ARTHRITIS

REACTIONS (9)
  - ANXIETY [None]
  - ASTHENIA [None]
  - CARDIOVASCULAR DISORDER [None]
  - CEREBROVASCULAR ACCIDENT [None]
  - DIZZINESS [None]
  - DYSPNOEA [None]
  - FALL [None]
  - GAIT DISTURBANCE [None]
  - TRANSIENT ISCHAEMIC ATTACK [None]
